FAERS Safety Report 19892777 (Version 1)
Quarter: 2021Q3

REPORT INFORMATION
  Report Type: Report from Study
  Country: US (occurrence: US)
  Receive Date: 20210928
  Receipt Date: 20210928
  Transmission Date: 20211014
  Serious: Yes (Hospitalization)
  Sender: FDA-Public Use
  Company Number: US-CELGENEUS-USA-20210905547

PATIENT
  Age: 31 Year
  Sex: Male

DRUGS (7)
  1. DEXAMETHASONE. [Suspect]
     Active Substance: DEXAMETHASONE
     Indication: T-CELL LYMPHOMA REFRACTORY
     Dosage: 8 MILLIGRAM
     Route: 048
     Dates: start: 20210716
  2. ROMIDEPSIN. [Suspect]
     Active Substance: ROMIDEPSIN
     Indication: T-CELL LYMPHOMA REFRACTORY
     Route: 041
     Dates: end: 20210727
  3. TYLENOL [Concomitant]
     Active Substance: ACETAMINOPHEN
     Indication: HYPOTENSION
     Dosage: EVERY 6 HOURS
     Route: 065
  4. ALLOPURINOL. [Concomitant]
     Active Substance: ALLOPURINOL
     Indication: TUMOUR LYSIS SYNDROME
     Route: 065
  5. LENALIDOMIDE [Suspect]
     Active Substance: LENALIDOMIDE
     Indication: T-CELL LYMPHOMA REFRACTORY
     Route: 048
     Dates: start: 20210713, end: 20210714
  6. OXYCODONE [Concomitant]
     Active Substance: OXYCODONE
     Indication: HYPOTENSION
     Dosage: UNKNOWN
     Route: 065
  7. AZACITIDINE. [Suspect]
     Active Substance: AZACITIDINE
     Indication: T-CELL LYMPHOMA REFRACTORY
     Route: 065

REACTIONS (1)
  - Tumour flare [Recovered/Resolved]

NARRATIVE: CASE EVENT DATE: 20210714
